FAERS Safety Report 7234026-X (Version None)
Quarter: 2011Q1

REPORT INFORMATION
  Report Type: 
  Country: None (occurrence: None)
  Receive Date: 20110119
  Receipt Date: 20110107
  Transmission Date: 20110831
  Serious: No
  Sender: FDA-Public Use
  Company Number: US-B.I. PHARMACEUTICALS,INC./RIDGEFIELD-2011-BP-00800BP

PATIENT
  Age: 92 Year
  Sex: Female

DRUGS (6)
  1. ZETIA [Concomitant]
     Indication: BLOOD CHOLESTEROL INCREASED
  2. SYNTHROID [Concomitant]
     Indication: HYPOTHYROIDISM
  3. PRADAXA [Suspect]
     Indication: ATRIAL FIBRILLATION
     Dosage: 300 MG
     Route: 048
     Dates: start: 20110107
  4. BENICAR [Concomitant]
     Indication: HYPERTENSION
  5. CELEBREX [Concomitant]
     Indication: ARTHRITIS
  6. BYSTOLIC [Concomitant]
     Indication: HYPERTENSION

REACTIONS (2)
  - NASOPHARYNGITIS [None]
  - RHINORRHOEA [None]
